FAERS Safety Report 13534210 (Version 2)
Quarter: 2017Q4

REPORT INFORMATION
  Report Type: Report from Study
  Country: US (occurrence: US)
  Receive Date: 20170510
  Receipt Date: 20171012
  Transmission Date: 20180320
  Serious: Yes (Hospitalization, Other)
  Sender: FDA-Public Use
  Company Number: US-ARIAD-2017US008165

PATIENT
  Sex: Female

DRUGS (2)
  1. ICLUSIG [Suspect]
     Active Substance: PONATINIB
     Dosage: 45 MG, QD
     Route: 048
     Dates: end: 20170929
  2. ICLUSIG [Suspect]
     Active Substance: PONATINIB
     Indication: CHRONIC MYELOID LEUKAEMIA
     Dosage: 45 MG, QD
     Route: 048
     Dates: start: 20160818

REACTIONS (11)
  - Dizziness [Unknown]
  - Heart rate decreased [Unknown]
  - Stent placement [Unknown]
  - Dyspnoea [Unknown]
  - Acne [Not Recovered/Not Resolved]
  - Eye disorder [Unknown]
  - Weight decreased [Not Recovered/Not Resolved]
  - Skin exfoliation [Not Recovered/Not Resolved]
  - Blood count abnormal [Unknown]
  - Arterial occlusive disease [Unknown]
  - Cardiac disorder [Unknown]
